FAERS Safety Report 9804401 (Version 2)
Quarter: 2014Q3

REPORT INFORMATION
  Report Type: Spontaneous
  Country: US (occurrence: US)
  Receive Date: 20140108
  Receipt Date: 20140711
  Transmission Date: 20150326
  Serious: Yes (Other)
  Sender: FDA-Public Use
  Company Number: US-PURDUE-USA-2014-0109992

PATIENT
  Age: 65 Year
  Sex: Female
  Weight: 58.96 kg

DRUGS (2)
  1. OXYCODONE [Suspect]
     Active Substance: OXYCODONE
     Indication: PAIN
     Dosage: NO MORE THAN 30 MG A DAY
     Dates: start: 2010, end: 2013
  2. OXYCODONE HYDROCHLORIDE IR [Suspect]
     Active Substance: OXYCODONE HYDROCHLORIDE
     Indication: PRODUCT USED FOR UNKNOWN INDICATION
     Dosage: UNK
     Route: 048

REACTIONS (4)
  - Wrong technique in drug usage process [Unknown]
  - Epistaxis [Unknown]
  - Ear haemorrhage [Unknown]
  - Amnesia [Unknown]
